FAERS Safety Report 8593861-6 (Version None)
Quarter: 2012Q3

REPORT INFORMATION
  Report Type: 
  Country: None (occurrence: None)
  Receive Date: 20120814
  Receipt Date: 20120808
  Transmission Date: 20120928
  Serious: Yes (Death)
  Sender: FDA-Public Use
  Company Number: US-FRI-1000037709

PATIENT
  Age: 33 Year
  Sex: Male

DRUGS (3)
  1. VIIBRYD [Suspect]
     Dosage: 20 MG
     Route: 048
     Dates: start: 20120101, end: 20120101
  2. VIIBRYD [Suspect]
     Dosage: 40 MG
     Route: 048
     Dates: start: 20120101, end: 20120701
  3. VIIBRYD [Suspect]
     Indication: DEPRESSION
     Dosage: 10 MG
     Route: 048
     Dates: start: 20120101, end: 20120101

REACTIONS (1)
  - COMPLETED SUICIDE [None]
